FAERS Safety Report 9225466 (Version 2)
Quarter: 2013Q2

REPORT INFORMATION
  Report Type: Spontaneous
  Country: IT (occurrence: IT)
  Receive Date: 20130411
  Receipt Date: 20130605
  Transmission Date: 20140414
  Serious: Yes (Other)
  Sender: FDA-Public Use
  Company Number: IT-JNJFOC-20130318462

PATIENT
  Sex: 0

DRUGS (3)
  1. RISPERDAL CONSTA [Suspect]
     Indication: PSYCHOTIC DISORDER
     Route: 030
  2. RISPERDAL CONSTA [Suspect]
     Indication: PSYCHOTIC DISORDER
     Dosage: 25 MG, 50 MG OR 75 MG
     Route: 030
  3. RISPERIDONE [Suspect]
     Indication: PSYCHOTIC DISORDER
     Dosage: 4 TO 8 MG
     Route: 048

REACTIONS (9)
  - Hyperlipidaemia [Unknown]
  - Hyperprolactinaemia [Unknown]
  - Weight increased [Unknown]
  - Type 2 diabetes mellitus [Unknown]
  - Hypertension [Unknown]
  - Orthostatic hypotension [Unknown]
  - Leukopenia [Unknown]
  - Extrapyramidal disorder [Unknown]
  - Blood uric acid increased [Unknown]
